FAERS Safety Report 7516616-X (Version None)
Quarter: 2011Q2

REPORT INFORMATION
  Report Type: 
  Country: None (occurrence: None)
  Receive Date: 20110601
  Receipt Date: 20110519
  Transmission Date: 20111010
  Serious: Yes (Death, Hospitalization, Other)
  Sender: FDA-Public Use
  Company Number: US-CELGENEUS-163-21880-11052830

PATIENT
  Age: 79 Year
  Sex: Female

DRUGS (7)
  1. ANTIBIOTICS [Concomitant]
     Route: 065
  2. REVLIMID [Suspect]
     Dosage: 10 MILLIGRAM
     Route: 048
     Dates: start: 20100201
  3. REVLIMID [Suspect]
     Dosage: 10 MILLIGRAM
     Route: 048
     Dates: start: 20090601, end: 20090801
  4. NEUPOGEN [Concomitant]
     Route: 065
  5. PRBC [Concomitant]
     Route: 051
  6. PREDNISONE [Concomitant]
     Route: 065
  7. EXJADE [Concomitant]
     Route: 065

REACTIONS (6)
  - SEPSIS [None]
  - DEATH [None]
  - CELLULITIS [None]
  - THROMBOCYTOPENIA [None]
  - NEUTROPENIA [None]
  - PNEUMONIA [None]
